FAERS Safety Report 8935523 (Version 1)
Quarter: 2012Q4

REPORT INFORMATION
  Report Type: 
  Country: CL (occurrence: CL)
  Receive Date: 20121130
  Receipt Date: 20121130
  Transmission Date: 20130627
  Serious: Yes (Other)
  Sender: FDA-Public Use
  Company Number: PHHY2012CL096884

PATIENT
  Age: 84 Year
  Sex: Female

DRUGS (7)
  1. ACLASTA [Suspect]
     Indication: OSTEOPOROSIS
     Dosage: 5 mg
     Route: 042
     Dates: start: 2010
  2. TAREG [Suspect]
  3. STRESAM [Concomitant]
  4. ELEVAL [Concomitant]
  5. FAMOTIDIN [Concomitant]
  6. CRANBERRY [Concomitant]
  7. VIT D [Concomitant]

REACTIONS (4)
  - Inguinal hernia [Recovering/Resolving]
  - Pneumonitis [Recovering/Resolving]
  - Discomfort [Recovering/Resolving]
  - Musculoskeletal pain [Recovering/Resolving]
